FAERS Safety Report 25947185 (Version 1)
Quarter: 2025Q4

REPORT INFORMATION
  Report Type: Spontaneous
  Country: US (occurrence: US)
  Receive Date: 20251022
  Receipt Date: 20251022
  Transmission Date: 20260118
  Serious: No
  Sender: QUAGEN PHARMACEUTICALS
  Company Number: US-QUAGEN-2025QUASPO00685

PATIENT
  Age: 9 Year
  Sex: Female

DRUGS (1)
  1. CYPROHEPTADINE HYDROCHLORIDE [Suspect]
     Active Substance: CYPROHEPTADINE HYDROCHLORIDE
     Indication: Migraine prophylaxis
     Route: 065

REACTIONS (4)
  - Feeling abnormal [Unknown]
  - Hypersomnia [Unknown]
  - Irritability [Unknown]
  - Product use in unapproved indication [Unknown]
